FAERS Safety Report 5367764-4 (Version None)
Quarter: 2007Q2

REPORT INFORMATION
  Report Type: 
  Country: None (occurrence: None)
  Receive Date: 20070622
  Receipt Date: 20070607
  Transmission Date: 20071010
  Serious: Yes (Hospitalization)
  Sender: FDA-Public Use
  Company Number: US-SHR-US-2007-011171

PATIENT
  Age: 25 Year
  Sex: Male
  Weight: 81.633 kg

DRUGS (3)
  1. BETASERON [Suspect]
     Indication: RELAPSING-REMITTING MULTIPLE SCLEROSIS
     Dosage: 8 MIU, EVERY 2D
     Route: 058
     Dates: start: 20050914
  2. TRAMADOL HCL [Concomitant]
     Indication: PAIN
     Dosage: UNK, AS REQ'D
  3. OXYCODONE HCL [Concomitant]
     Indication: PAIN
     Dosage: UNK, AS REQ'D

REACTIONS (6)
  - DISORIENTATION [None]
  - DIZZINESS [None]
  - MULTIPLE SCLEROSIS [None]
  - PAIN IN EXTREMITY [None]
  - TESTICULAR PAIN [None]
  - VISUAL DISTURBANCE [None]
